FAERS Safety Report 8516645-3 (Version None)
Quarter: 2012Q3

REPORT INFORMATION
  Report Type: 
  Country: None (occurrence: None)
  Receive Date: 20120718
  Receipt Date: 20120712
  Transmission Date: 20120928
  Serious: Yes (Hospitalization)
  Sender: FDA-Public Use
  Company Number: GR-US-EMD SERONO, INC.-7147212

PATIENT
  Age: 38 Year
  Sex: Female

DRUGS (7)
  1. SEROSANOL [Concomitant]
     Indication: PRODUCT USED FOR UNKNOWN INDICATION
  2. VELTIUM [Concomitant]
     Indication: PRODUCT USED FOR UNKNOWN INDICATION
  3. LYRICA [Concomitant]
     Indication: PRODUCT USED FOR UNKNOWN INDICATION
  4. GLUCOPHAGE [Concomitant]
     Indication: PRODUCT USED FOR UNKNOWN INDICATION
  5. REBIF [Suspect]
     Indication: MULTIPLE SCLEROSIS
     Route: 058
     Dates: start: 20100301
  6. LEXOTANIL [Concomitant]
     Indication: PRODUCT USED FOR UNKNOWN INDICATION
  7. LANEX [Concomitant]
     Indication: PRODUCT USED FOR UNKNOWN INDICATION

REACTIONS (2)
  - PYREXIA [None]
  - HEPATOSPLENOMEGALY [None]
